FAERS Safety Report 9983169 (Version 8)
Quarter: 2015Q1

REPORT INFORMATION
  Report Type: Report from Study
  Country: DE (occurrence: DE)
  Receive Date: 20140307
  Receipt Date: 20150311
  Transmission Date: 20150721
  Serious: Yes (Death, Hospitalization)
  Sender: FDA-Public Use
  Company Number: DE-B.I. PHARMACEUTICALS,INC./RIDGEFIELD-2014-BI-08468II

PATIENT
  Age: 77 Year
  Sex: Male
  Weight: 106 kg

DRUGS (25)
  1. MOLSIDOMIN [Concomitant]
     Indication: CARDIAC DISORDER
     Dosage: 8 MG
     Route: 048
     Dates: start: 2004
  2. TORASEMID [Concomitant]
     Active Substance: TORSEMIDE
     Dosage: 10 MG
     Route: 065
     Dates: start: 20140127
  3. FRESUBIN DRINK [Concomitant]
     Indication: NUTRITIONAL SUPPLEMENTATION
     Route: 048
     Dates: start: 20140211
  4. BIBW 2992 [Suspect]
     Active Substance: AFATINIB
     Indication: PANCREATIC CARCINOMA METASTATIC
     Dosage: 30 MG
     Route: 048
     Dates: start: 20140115, end: 20140223
  5. PROVAS [Concomitant]
     Active Substance: VALSARTAN
     Indication: HYPERTENSION
     Dosage: 160 MG
     Route: 048
     Dates: start: 2004
  6. BUDENOSIDE DA [Concomitant]
     Indication: CHRONIC OBSTRUCTIVE PULMONARY DISEASE
     Dosage: 0.4 MG
     Route: 048
     Dates: start: 2004
  7. BISOPROLOL COMB [Concomitant]
     Indication: HYPERTENSION
     Route: 065
     Dates: start: 2011, end: 20140122
  8. FENTANYL. [Concomitant]
     Active Substance: FENTANYL
     Indication: CANCER PAIN
     Dosage: 12 MCG
     Route: 061
     Dates: start: 20140108
  9. BEPARTHEN MUNDSPULLOSUNG [Concomitant]
     Indication: DRY MOUTH
     Route: 065
     Dates: start: 20140122, end: 20140124
  10. GEMCITABINE [Suspect]
     Active Substance: GEMCITABINE\GEMCITABINE HYDROCHLORIDE
     Indication: PANCREATIC CARCINOMA METASTATIC
     Dosage: DOSE PER APPLICATION: 1000MG/ METER SQUARE
     Route: 042
     Dates: start: 20140115, end: 20140219
  11. DILTIAZEM RET [Concomitant]
     Indication: CARDIAC DISORDER
     Dosage: 180 MG
     Route: 048
     Dates: start: 2004
  12. PENTALONG [Concomitant]
     Active Substance: PENTAERYTHRITOL TETRANITRATE
     Indication: CARDIAC DISORDER
     Route: 048
     Dates: start: 2011
  13. ALLOPURINOL. [Concomitant]
     Active Substance: ALLOPURINOL
     Indication: HYPERURICAEMIA
     Dosage: 150 MG
     Route: 048
     Dates: start: 2004
  14. TORASEMID [Concomitant]
     Active Substance: TORSEMIDE
     Indication: PROPHYLAXIS AGAINST DEHYDRATION
     Route: 065
     Dates: start: 2011, end: 20140225
  15. CIPROFLOXACIN. [Concomitant]
     Active Substance: CIPROFLOXACIN
     Indication: HAEMATOMA
     Route: 065
     Dates: start: 20140108, end: 20140117
  16. ARIXTRA HEPARINSPRITIZEN [Concomitant]
     Indication: THROMBOSIS
     Dosage: 7.5 MG
     Route: 058
     Dates: start: 20140127
  17. NACL + ASS [Concomitant]
     Indication: CHRONIC OBSTRUCTIVE PULMONARY DISEASE
     Dosage: 1000 ML
     Route: 065
     Dates: start: 20140212, end: 20140212
  18. ISDN (ISOSORBIDE DINITRATE) [Concomitant]
     Active Substance: ISOSORBIDE DINITRATE
     Indication: CARDIAC DISORDER
     Route: 065
     Dates: start: 201312, end: 20140124
  19. ASPIRIN. [Concomitant]
     Active Substance: ASPIRIN
     Indication: THROMBOSIS
     Dosage: 100 MG
     Route: 048
     Dates: start: 2011
  20. SIMVABELA [Concomitant]
     Indication: HYPERLIPIDAEMIA
     Dosage: 20 MG
     Route: 048
     Dates: start: 2013
  21. NOVALGIN [Concomitant]
     Active Substance: METAMIZOLE SODIUM
     Indication: CANCER PAIN
     Dosage: 2 G
     Route: 048
     Dates: start: 201312
  22. FORMOTEROL [Concomitant]
     Active Substance: FORMOTEROL
     Indication: CHRONIC OBSTRUCTIVE PULMONARY DISEASE
     Dosage: 0.8 MG
     Route: 048
     Dates: start: 2004
  23. SALBUTAMOL DA [Concomitant]
     Indication: CHRONIC OBSTRUCTIVE PULMONARY DISEASE
     Route: 048
     Dates: start: 2004
  24. OMEPRAZOL [Concomitant]
     Active Substance: OMEPRAZOLE
     Indication: PROPHYLAXIS
     Dosage: 40 MG
     Route: 048
     Dates: start: 201311
  25. NACL + CERNEVIT [Concomitant]
     Indication: VITAMIN SUPPLEMENTATION
     Dosage: 1000ML
     Route: 065
     Dates: start: 20140218

REACTIONS (5)
  - Malignant neoplasm progression [Fatal]
  - Diarrhoea [Recovered/Resolved]
  - General physical health deterioration [Recovered/Resolved]
  - Nausea [Recovered/Resolved]
  - Dehydration [Recovered/Resolved]

NARRATIVE: CASE EVENT DATE: 20140120
